FAERS Safety Report 9888891 (Version 1)
Quarter: 2014Q1

REPORT INFORMATION
  Report Type: Spontaneous
  Country: US (occurrence: US)
  Receive Date: 20140211
  Receipt Date: 20140211
  Transmission Date: 20141002
  Serious: Yes (Hospitalization)
  Sender: FDA-Public Use
  Company Number: US-GLAXOSMITHKLINE-A1059641A

PATIENT
  Age: 37 Year
  Sex: Female

DRUGS (3)
  1. VENTOLIN HFA [Suspect]
     Indication: ASTHMA
     Dosage: 90MCG UNKNOWN
     Route: 055
     Dates: start: 1999
  2. FLOVENT [Suspect]
     Indication: ASTHMA
     Route: 055
     Dates: start: 201302
  3. CONCURRENT MEDICATIONS [Concomitant]

REACTIONS (4)
  - Suicidal ideation [Recovered/Resolved]
  - Bipolar disorder [Recovered/Resolved]
  - Hallucination [Recovered/Resolved]
  - Hallucination, auditory [Recovered/Resolved]
